FAERS Safety Report 6402830-3 (Version None)
Quarter: 2009Q4

REPORT INFORMATION
  Report Type: 
  Country: None (occurrence: None)
  Receive Date: 20091016
  Receipt Date: 20091008
  Transmission Date: 20100525
  Serious: Yes (Other)
  Sender: FDA-Public Use
  Company Number: US-BIOGENIDEC-2009BI032510

PATIENT
  Age: 49 Year
  Sex: Female

DRUGS (2)
  1. TYSABRI [Suspect]
     Indication: MULTIPLE SCLEROSIS
     Route: 042
     Dates: start: 20050208, end: 20050208
  2. TYSABRI [Suspect]
     Route: 042
     Dates: start: 20090616, end: 20090824

REACTIONS (6)
  - AGRAPHIA [None]
  - APHASIA [None]
  - CONVULSION [None]
  - DRUG SPECIFIC ANTIBODY PRESENT [None]
  - FEELING ABNORMAL [None]
  - HYPERSENSITIVITY [None]
